FAERS Safety Report 26199708 (Version 1)
Quarter: 2025Q4

REPORT INFORMATION
  Report Type: Report from Study
  Country: US (occurrence: US)
  Receive Date: 20251225
  Receipt Date: 20251225
  Transmission Date: 20260117
  Serious: Yes (Hospitalization)
  Sender: Unknown Manufacturer
  Company Number: US-GENETIX BIOTHERAPEUTICS INC.-US-BBB-25-00065

PATIENT
  Age: 28 Year
  Sex: Male
  Weight: 48.5 kg

DRUGS (10)
  1. ZYNTEGLO [Suspect]
     Active Substance: BETIBEGLOGENE AUTOTEMCEL
     Indication: Thalassaemia beta
     Dosage: 11.9 X10^6 CD+34 CELLS/KG, SINGLE
     Dates: start: 20250617, end: 20250617
  2. FILGRASTIM [Concomitant]
     Active Substance: FILGRASTIM
     Indication: Haematopoietic stem cell mobilisation
     Dosage: 300 MICROGRAM, QD
     Route: 065
     Dates: start: 20250301, end: 20250307
  3. PLERIXAFOR [Concomitant]
     Active Substance: PLERIXAFOR
     Indication: Haematopoietic stem cell mobilisation
     Dosage: 11.6 MILLIGRAM, QD
     Route: 065
     Dates: start: 20250305, end: 20250307
  4. BUSULFAN [Concomitant]
     Active Substance: BUSULFAN
     Indication: Bone marrow conditioning regimen
     Dosage: 126 MILLIGRAM, QD
     Route: 065
     Dates: start: 20250611, end: 20250611
  5. BUSULFAN [Concomitant]
     Active Substance: BUSULFAN
     Dosage: 132 MILLIGRAM, QD
     Route: 065
     Dates: start: 20250612, end: 20250612
  6. BUSULFAN [Concomitant]
     Active Substance: BUSULFAN
     Dosage: 144 MILLIGRAM, QD
     Route: 065
     Dates: start: 20250613, end: 20250613
  7. BUSULFAN [Concomitant]
     Active Substance: BUSULFAN
     Dosage: 132 MILLIGRAM, QD
     Route: 065
     Dates: start: 20250614, end: 20250614
  8. HYDROXYUREA [Concomitant]
     Active Substance: HYDROXYUREA
     Indication: Product used for unknown indication
     Dosage: UNK UNK, UNK
     Route: 065
     Dates: start: 20111201, end: 20250603
  9. DEFERASIROX [Concomitant]
     Active Substance: DEFERASIROX
     Indication: Product used for unknown indication
     Dosage: UNK, UNK
     Route: 065
     Dates: start: 20110801, end: 20250603
  10. DESFERAL [Concomitant]
     Active Substance: DEFEROXAMINE MESYLATE
     Indication: Product used for unknown indication
     Dosage: UNK, UNK
     Route: 065

REACTIONS (2)
  - Febrile neutropenia [Recovered/Resolved]
  - Mucosal inflammation [Recovered/Resolved]

NARRATIVE: CASE EVENT DATE: 20250628
